FAERS Safety Report 8392845-0 (Version None)
Quarter: 2012Q2

REPORT INFORMATION
  Report Type: 
  Country: None (occurrence: None)
  Receive Date: 20120529
  Receipt Date: 20110609
  Transmission Date: 20120825
  Serious: No
  Sender: FDA-Public Use
  Company Number: US-MYLANLABS-2011S1006164

PATIENT
  Age: 51 Year
  Sex: Male

DRUGS (9)
  1. CYCLOBENAZPRINE [Concomitant]
     Indication: FIBROMYALGIA
  2. PANTOPRAZOLE [Concomitant]
     Dosage: GERD + IBS
  3. ZOLPIDEM TARTRATE [Suspect]
     Indication: FIBROMYALGIA
     Route: 048
     Dates: start: 20110319
  4. PILOCARPINE [Concomitant]
     Indication: SJOGREN'S SYNDROME
  5. ASPIRIN [Concomitant]
     Indication: HYPERTENSION
  6. CYMBALTA [Concomitant]
     Indication: ARTHRITIS
  7. OXYBUTYNIN [Concomitant]
     Indication: INCONTINENCE
  8. NABUMETONE [Concomitant]
     Indication: ARTHRITIS
  9. LOSARTAN POTASSIUM [Concomitant]
     Indication: HYPERTENSION

REACTIONS (3)
  - RENAL PAIN [None]
  - TREMOR [None]
  - NAUSEA [None]
